FAERS Safety Report 11857336 (Version 2)
Quarter: 2016Q1

REPORT INFORMATION
  Report Type: Spontaneous
  Country: US (occurrence: US)
  Receive Date: 20151221
  Receipt Date: 20160211
  Transmission Date: 20160526
  Serious: Yes (Other)
  Sender: FDA-Public Use
  Company Number: US-ARBOR PHARMACEUTICALS, LLC-US-2015ARB002601

PATIENT

DRUGS (4)
  1. CHLORTHALIDONE. [Concomitant]
     Active Substance: CHLORTHALIDONE
     Indication: HYPERTENSION
     Dosage: 25 MG, UNK
     Route: 048
     Dates: start: 20150724
  2. EDARBI [Suspect]
     Active Substance: AZILSARTAN KAMEDOXOMIL
     Indication: HYPERTENSION
     Dosage: 80 MG, UNK
  3. EDARBI [Suspect]
     Active Substance: AZILSARTAN KAMEDOXOMIL
     Dosage: 40 MG, UNK
     Route: 048
     Dates: start: 20150904, end: 20151002
  4. LIVALO [Concomitant]
     Active Substance: PITAVASTATIN CALCIUM
     Indication: BLOOD CHOLESTEROL INCREASED
     Dosage: 2 MG, UNK
     Route: 048
     Dates: start: 20150921

REACTIONS (7)
  - Disturbance in attention [Unknown]
  - Sluggishness [Unknown]
  - Fatigue [Recovered/Resolved]
  - Exposure during pregnancy [Unknown]
  - Headache [Recovered/Resolved]
  - Arthralgia [Recovered/Resolved]
  - Feeling abnormal [Recovered/Resolved]

NARRATIVE: CASE EVENT DATE: 2015
